FAERS Safety Report 11179832 (Version 1)
Quarter: 2015Q2

REPORT INFORMATION
  Report Type: Spontaneous
  Country: US (occurrence: None)
  Receive Date: 20150520
  Receipt Date: 20150520
  Transmission Date: 20150821
  Serious: Yes (Life-Threatening)
  Sender: FDA-Public Use
  Company Number: GR 14-002

PATIENT
  Age: 46 Year
  Sex: Female

DRUGS (66)
  1. EPIDERMOPHYTON [Suspect]
     Active Substance: EPIDERMOPHYTON FLOCCOSUM
     Indication: HYPERSENSITIVITY
     Dates: start: 20140122
  2. EPIDERMOPHYTON [Suspect]
     Active Substance: EPIDERMOPHYTON FLOCCOSUM
     Indication: SKIN TEST
     Dates: start: 20140122
  3. GS EASTERN OAK MIX OAK, BLACK (QUERCUS VELUTINA) OAK, RED (QUERCUS RUBRA) OAK, WHITE (QUERCUS ALBA) 1:20 W/V, 50% GLY GREER LABORATORIES, INC. [Suspect]
     Active Substance: QUERCUS ALBA POLLEN\QUERCUS RUBRA POLLEN\QUERCUS VELUTINA POLLEN
     Dates: start: 20140122
  4. PRIVET [Suspect]
     Active Substance: LIGUSTRUM VULGARE POLLEN
     Indication: HYPERSENSITIVITY
     Dates: start: 20140122
  5. ASPERGILLUS FUMIGATUS. [Suspect]
     Active Substance: ASPERGILLUS FUMIGATUS
     Indication: HYPERSENSITIVITY
     Dates: start: 20140122
  6. CANDIDA [Suspect]
     Active Substance: CANDIDA ALBICANS
     Indication: SKIN TEST
     Dates: start: 20140122
  7. GRAIN SMUT MIXTURE [Suspect]
     Active Substance: USTILAGO AVENAE\USTILAGO MAYDIS\USTILAGO NUDA HORDEI\USTILAGO TRITICI
     Indication: HYPERSENSITIVITY
     Dates: start: 20140122
  8. HELMINTHOSPORIUM [Suspect]
     Active Substance: COCHLIOBOLUS SATIVUS
     Indication: HYPERSENSITIVITY
     Dates: start: 20140122
  9. HORSE HAIR [Suspect]
     Active Substance: EQUUS CABALLUS HAIR
     Indication: SKIN TEST
     Dates: start: 20140122
  10. PIGWEED MIXTURE [Suspect]
     Active Substance: AMARANTHUS PALMERI POLLEN\AMARANTHUS RETROFLEXUS POLLEN\AMARANTHUS SPINOSUS POLLEN\AMARANTHUS TUBERCULATUS POLLEN
     Indication: HYPERSENSITIVITY
     Dates: start: 20140122
  11. POPLAR MIXTURE [Suspect]
     Active Substance: POPULUS ALBA POLLEN\POPULUS NIGRA POLLEN
     Indication: SKIN TEST
     Dates: start: 20140122
  12. PULLULARIA [Suspect]
     Active Substance: AUREOBASIDIUM PULLULANS VAR. PULLUTANS
     Indication: SKIN TEST
     Dates: start: 20140122
  13. TRICHOPHYTON MIXTURE [Suspect]
     Active Substance: TRICHOPHYTON MENTAGROPHYTES\TRICHOPHYTON RUBRUM
     Indication: SKIN TEST
     Dates: start: 20140122
  14. ELAVUK [Concomitant]
  15. STANDARDIZED TIMOTHY GRASS POLLEN [Suspect]
     Active Substance: PHLEUM PRATENSE POLLEN
     Indication: HYPERSENSITIVITY
     Dates: start: 20140122
  16. ASPERGILLUS FUMIGATUS. [Suspect]
     Active Substance: ASPERGILLUS FUMIGATUS
     Indication: SKIN TEST
     Dates: start: 20140122
  17. BLACK WALNUT POLLEN [Suspect]
     Active Substance: JUGLANS NIGRA POLLEN
     Indication: HYPERSENSITIVITY
     Dates: start: 20140122
  18. CORN SMUT [Suspect]
     Active Substance: USTILAGO MAYDIS
     Indication: HYPERSENSITIVITY
     Dates: start: 20140122
  19. FLONASE [Concomitant]
     Active Substance: FLUTICASONE PROPIONATE
  20. ALBUTEROL. [Concomitant]
     Active Substance: ALBUTEROL
  21. MULTI-VITAMIN [Concomitant]
     Active Substance: .ALPHA.-TOCOPHEROL ACETATE, DL-\ASCORBIC ACID\CYANOCOBALAMIN\FLUORIDE ION\FOLIC ACID\NIACIN\PYRIDOXINE\RIBOFLAVIN\THIAMINE\VITAMIN A\VITAMIN D
  22. STANDARDIZED BERMUDA GRASS [Suspect]
     Active Substance: CYNODON DACTYLON POLLEN
     Indication: SKIN TEST
     Dates: start: 20140122
  23. STANDARDIZED CAT HAIR [Suspect]
     Active Substance: FELIS CATUS HAIR
     Dates: start: 20140122
  24. ALTERNARIA [Suspect]
     Active Substance: ALTERNARIA ALTERNATA
     Dates: start: 20140122
  25. BLACK WALNUT POLLEN [Suspect]
     Active Substance: JUGLANS NIGRA POLLEN
     Indication: SKIN TEST
     Dates: start: 20140122
  26. CORN SMUT [Suspect]
     Active Substance: USTILAGO MAYDIS
     Indication: SKIN TEST
     Dates: start: 20140122
  27. ENGLISH PLANTAIN [Suspect]
     Active Substance: PLANTAGO LANCEOLATA POLLEN
     Indication: HYPERSENSITIVITY
     Dates: start: 20140122
  28. GRASS SMUT MIXTURE [Suspect]
     Active Substance: SPORISORIUM CRUENTUM\USTILAGO CYNODONTIS
     Indication: HYPERSENSITIVITY
     Dates: start: 20140122
  29. RUSSIAN OLIVE [Suspect]
     Active Substance: ELAEAGNUS ANGUSTIFOLIA POLLEN
     Indication: SKIN TEST
     Dates: start: 20140122
  30. HYDROCHLOROTHIAZIDE. [Concomitant]
     Active Substance: HYDROCHLOROTHIAZIDE
  31. CEPHALOSPORIUM (ACREMONIUM STRICTUM) [Suspect]
     Active Substance: ACREMONIUM STRICTUM
     Indication: SKIN TEST
     Dates: start: 20140122
  32. ENGLISH PLANTAIN [Suspect]
     Active Substance: PLANTAGO LANCEOLATA POLLEN
     Indication: SKIN TEST
     Dates: start: 20140122
  33. GRAIN SMUT MIXTURE [Suspect]
     Active Substance: USTILAGO AVENAE\USTILAGO MAYDIS\USTILAGO NUDA HORDEI\USTILAGO TRITICI
     Indication: SKIN TEST
     Dates: start: 20140122
  34. HELMINTHOSPORIUM [Suspect]
     Active Substance: COCHLIOBOLUS SATIVUS
     Indication: SKIN TEST
     Dates: start: 20140122
  35. PIGWEED MIXTURE [Suspect]
     Active Substance: AMARANTHUS PALMERI POLLEN\AMARANTHUS RETROFLEXUS POLLEN\AMARANTHUS SPINOSUS POLLEN\AMARANTHUS TUBERCULATUS POLLEN
     Indication: SKIN TEST
     Dates: start: 20140122
  36. PULLULARIA [Suspect]
     Active Substance: AUREOBASIDIUM PULLULANS VAR. PULLUTANS
     Indication: HYPERSENSITIVITY
     Dates: start: 20140122
  37. TRICHOPHYTON MIXTURE [Suspect]
     Active Substance: TRICHOPHYTON MENTAGROPHYTES\TRICHOPHYTON RUBRUM
     Indication: HYPERSENSITIVITY
     Dates: start: 20140122
  38. WHITE ASH [Suspect]
     Active Substance: FRAXINUS AMERICANA POLLEN
     Indication: SKIN TEST
     Dates: start: 20140122
  39. STANDARDIZED BERMUDA GRASS [Suspect]
     Active Substance: CYNODON DACTYLON POLLEN
     Indication: HYPERSENSITIVITY
     Dates: start: 20140122
  40. STANDARDIZED TIMOTHY GRASS POLLEN [Suspect]
     Active Substance: PHLEUM PRATENSE POLLEN
     Indication: SKIN TEST
     Dates: start: 20140122
  41. CATTLE HAIR [Suspect]
     Active Substance: BOS TAURUS HAIR
     Indication: HYPERSENSITIVITY
     Dates: start: 20140122
  42. CLADOSPORIUM SPHAEROSPERMUM. [Suspect]
     Active Substance: CLADOSPORIUM SPHAEROSPERMUM
     Indication: SKIN TEST
     Dates: start: 20140122
  43. HORSE HAIR [Suspect]
     Active Substance: EQUUS CABALLUS HAIR
     Indication: HYPERSENSITIVITY
     Dates: start: 20140122
  44. MAPLE POLLEN MIXTURE [Suspect]
     Active Substance: ACER RUBRUM POLLEN\ACER SACCHARINUM POLLEN\ACER SACCHARUM POLLEN
     Indication: SKIN TEST
     Dates: start: 20140122
  45. PECAN POLLEN [Suspect]
     Active Substance: CARYA ILLINOINENSIS POLLEN
     Indication: SKIN TEST
     Dates: start: 20140122
  46. POPLAR MIXTURE [Suspect]
     Active Substance: POPULUS ALBA POLLEN\POPULUS NIGRA POLLEN
     Indication: HYPERSENSITIVITY
     Dates: start: 20140122
  47. RUSSIAN OLIVE [Suspect]
     Active Substance: ELAEAGNUS ANGUSTIFOLIA POLLEN
     Indication: HYPERSENSITIVITY
     Dates: start: 20140122
  48. WHITE ASH [Suspect]
     Active Substance: FRAXINUS AMERICANA POLLEN
     Indication: HYPERSENSITIVITY
     Dates: start: 20140122
  49. STANDARDIZED CAT HAIR [Suspect]
     Active Substance: FELIS CATUS HAIR
     Indication: HYPERSENSITIVITY
     Dates: start: 20140122
  50. STANDARDIZED SHORT RAGWEED POLLEN [Suspect]
     Active Substance: AMBROSIA ARTEMISIIFOLIA POLLEN
     Indication: HYPERSENSITIVITY
     Dates: start: 20140122
  51. STANDARDIZED SHORT RAGWEED POLLEN [Suspect]
     Active Substance: AMBROSIA ARTEMISIIFOLIA POLLEN
     Indication: SKIN TEST
     Dates: start: 20140122
  52. CATTLE HAIR [Suspect]
     Active Substance: BOS TAURUS HAIR
     Indication: SKIN TEST
     Dates: start: 20140122
  53. CANDIDA [Suspect]
     Active Substance: CANDIDA ALBICANS
     Indication: HYPERSENSITIVITY
     Dates: start: 20140122
  54. CEPHALOSPORIUM (ACREMONIUM STRICTUM) [Suspect]
     Active Substance: ACREMONIUM STRICTUM
     Indication: HYPERSENSITIVITY
     Dates: start: 20140122
  55. CLADOSPORIUM SPHAEROSPERMUM. [Suspect]
     Active Substance: CLADOSPORIUM SPHAEROSPERMUM
     Indication: HYPERSENSITIVITY
     Dates: start: 20140122
  56. PECAN POLLEN [Suspect]
     Active Substance: CARYA ILLINOINENSIS POLLEN
     Indication: HYPERSENSITIVITY
     Dates: start: 20140122
  57. PRIVET [Suspect]
     Active Substance: LIGUSTRUM VULGARE POLLEN
     Indication: SKIN TEST
     Dates: start: 20140122
  58. SWEET GUM [Suspect]
     Active Substance: LIQUIDAMBAR STYRACIFLUA POLLEN
     Indication: HYPERSENSITIVITY
     Dates: start: 20140122
  59. DOG HAIR [Suspect]
     Active Substance: CANIS LUPUS FAMILIARIS HAIR
     Indication: HYPERSENSITIVITY
     Dates: start: 20140122
  60. DOG HAIR [Suspect]
     Active Substance: CANIS LUPUS FAMILIARIS HAIR
     Indication: SKIN TEST
     Dates: start: 20140122
  61. EASTERN COTTONWOOD [Suspect]
     Active Substance: POPULUS DELTOIDES POLLEN
     Indication: HYPERSENSITIVITY
     Dates: start: 20140122
  62. EASTERN COTTONWOOD [Suspect]
     Active Substance: POPULUS DELTOIDES POLLEN
     Indication: SKIN TEST
     Dates: start: 20140122
  63. GRASS SMUT MIXTURE [Suspect]
     Active Substance: SPORISORIUM CRUENTUM\USTILAGO CYNODONTIS
     Indication: SKIN TEST
     Dates: start: 20140122
  64. MAPLE POLLEN MIXTURE [Suspect]
     Active Substance: ACER RUBRUM POLLEN\ACER SACCHARINUM POLLEN\ACER SACCHARUM POLLEN
     Indication: HYPERSENSITIVITY
     Dates: start: 20140122
  65. SWEET GUM [Suspect]
     Active Substance: LIQUIDAMBAR STYRACIFLUA POLLEN
     Indication: SKIN TEST
     Dates: start: 20140122
  66. MIRALAX [Concomitant]
     Active Substance: POLYETHYLENE GLYCOL 3350

REACTIONS (5)
  - Anaphylactic reaction [None]
  - Product substitution issue [None]
  - Oxygen saturation decreased [None]
  - Product quality issue [None]
  - Blood pressure increased [None]

NARRATIVE: CASE EVENT DATE: 20140122
